FAERS Safety Report 6965065-1 (Version None)
Quarter: 2010Q3

REPORT INFORMATION
  Report Type: 
  Country: None (occurrence: None)
  Receive Date: 20100903
  Receipt Date: 20100824
  Transmission Date: 20110219
  Serious: Yes (Other)
  Sender: FDA-Public Use
  Company Number: US-SANOFI-AVENTIS-2010SA050588

PATIENT
  Sex: Female

DRUGS (3)
  1. MULTAQ [Suspect]
     Route: 048
  2. SYNTHROID [Concomitant]
  3. ANTIACID [Concomitant]

REACTIONS (1)
  - ATRIAL FIBRILLATION [None]
